FAERS Safety Report 15152360 (Version 2)
Quarter: 2018Q3

REPORT INFORMATION
  Report Type: Spontaneous
  Country: GB (occurrence: GB)
  Receive Date: 20180717
  Receipt Date: 20180820
  Transmission Date: 20181010
  Serious: Yes (Other)
  Sender: FDA-Public Use
  Company Number: GB-ALIMERA SCIENCES LIMITED-GB-IL-2018-004008

PATIENT

DRUGS (1)
  1. ILUVIEN [Suspect]
     Active Substance: FLUOCINOLONE ACETONIDE
     Indication: CYSTOID MACULAR OEDEMA
     Dosage: 0.25 ?G, QD ? UNKNOWN EYE
     Route: 031

REACTIONS (3)
  - Off label use [Unknown]
  - Intraocular pressure increased [Recovered/Resolved]
  - Iridocyclitis [Unknown]
